FAERS Safety Report 9905915 (Version 3)
Quarter: 2014Q2

REPORT INFORMATION
  Report Type: Spontaneous
  Country: US (occurrence: US)
  Receive Date: 20140218
  Receipt Date: 20140604
  Transmission Date: 20141212
  Serious: Yes (Hospitalization)
  Sender: FDA-Public Use
  Company Number: US-JNJFOC-20140205996

PATIENT
  Age: 75 Year
  Sex: Male
  Weight: 80.74 kg

DRUGS (11)
  1. XARELTO [Suspect]
     Indication: CEREBROVASCULAR ACCIDENT PROPHYLAXIS
     Route: 048
     Dates: start: 201308
  2. XARELTO [Suspect]
     Indication: ATRIAL FIBRILLATION
     Route: 048
     Dates: start: 201308
  3. SIMVASTATIN [Concomitant]
     Indication: PRODUCT USED FOR UNKNOWN INDICATION
     Route: 048
     Dates: start: 201401
  4. ATENOLOL [Concomitant]
     Indication: ATRIAL FIBRILLATION
     Route: 065
  5. LORAZEPAM [Concomitant]
     Indication: SLEEP DISORDER
     Route: 065
  6. ASPIRIN [Concomitant]
     Indication: ANTICOAGULANT THERAPY
     Route: 065
  7. ZINC [Concomitant]
     Indication: GENERAL PHYSICAL CONDITION
     Route: 065
  8. MAGNESIUM [Concomitant]
     Route: 065
  9. VITAMIN B COMPLEX [Concomitant]
     Route: 065
  10. VITAMIN D3 [Concomitant]
     Route: 065
  11. ZOCOR [Concomitant]
     Route: 065

REACTIONS (1)
  - Transient ischaemic attack [Recovering/Resolving]
